FAERS Safety Report 6302069-6 (Version None)
Quarter: 2009Q3

REPORT INFORMATION
  Report Type: 
  Country: None (occurrence: None)
  Receive Date: 20090807
  Receipt Date: 20090803
  Transmission Date: 20100115
  Serious: Yes (Death, Hospitalization)
  Sender: FDA-Public Use
  Company Number: FR-BAXTER-2009BH011874

PATIENT
  Age: 38 Year
  Sex: Female

DRUGS (7)
  1. ENDOXAN BAXTER [Suspect]
     Indication: B-CELL TYPE ACUTE LEUKAEMIA
     Route: 042
     Dates: start: 20090416, end: 20090416
  2. METHYLPREDNISOLONE 16MG TAB [Suspect]
     Indication: B-CELL TYPE ACUTE LEUKAEMIA
     Route: 038
     Dates: start: 20090416, end: 20090416
  3. ARACYTINE [Suspect]
     Indication: B-CELL TYPE ACUTE LEUKAEMIA
     Route: 038
     Dates: start: 20090416, end: 20090416
  4. METHOTREXATE GENERIC [Suspect]
     Indication: B-CELL TYPE ACUTE LEUKAEMIA
     Route: 038
     Dates: start: 20090416, end: 20090416
  5. DAUNORUBICIN HCL [Suspect]
     Indication: B-CELL TYPE ACUTE LEUKAEMIA
     Route: 042
     Dates: start: 20090416, end: 20090416
  6. VINCRISTINE SULFATE GENERIC [Suspect]
     Indication: B-CELL TYPE ACUTE LEUKAEMIA
     Route: 042
     Dates: start: 20090416, end: 20090416
  7. PREDNISONE TAB [Suspect]
     Indication: B-CELL TYPE ACUTE LEUKAEMIA
     Route: 048
     Dates: start: 20090408

REACTIONS (1)
  - VASCULITIS CEREBRAL [None]
